FAERS Safety Report 18327010 (Version 1)
Quarter: 2020Q3

REPORT INFORMATION
  Report Type: Spontaneous
  Country: FR (occurrence: FR)
  Receive Date: 20200929
  Receipt Date: 20200929
  Transmission Date: 20201103
  Serious: Yes (Hospitalization)
  Sender: FDA-Public Use
  Company Number: NVSC2020FR260655

PATIENT
  Age: 16 Year
  Sex: Male

DRUGS (3)
  1. TRAMADOL. [Suspect]
     Active Substance: TRAMADOL
     Indication: DRUG ABUSE
     Dosage: 1500 MG, TOTAL
     Route: 048
     Dates: start: 20200809, end: 20200809
  2. PARACETAMOL [Suspect]
     Active Substance: ACETAMINOPHEN
     Indication: DRUG ABUSE
     Dosage: 13000 MG, TOTAL
     Route: 048
     Dates: start: 20200809, end: 20200809
  3. CANNABIS [Suspect]
     Active Substance: CANNABIS SATIVA SUBSP. INDICA TOP
     Indication: DRUG ABUSE
     Dosage: 2 DF, QW
     Route: 055

REACTIONS (3)
  - Toxicity to various agents [Recovered/Resolved]
  - Substance abuse [Not Recovered/Not Resolved]
  - Drug abuse [Not Recovered/Not Resolved]

NARRATIVE: CASE EVENT DATE: 20200809
